FAERS Safety Report 20382744 (Version 1)
Quarter: 2022Q1

REPORT INFORMATION
  Report Type: Spontaneous
  Country: US (occurrence: None)
  Receive Date: 20220126
  Receipt Date: 20220126
  Transmission Date: 20220423
  Serious: Yes (Hospitalization)
  Sender: FDA-Public Use
  Company Number: None

PATIENT
  Sex: Male

DRUGS (22)
  1. CAPECITABINE [Suspect]
     Active Substance: CAPECITABINE
     Indication: Breast cancer female
     Dosage: FREQUENCY : TWICE A DAY;?
     Route: 048
  2. aspirin-acetaminophen-caffeine [Concomitant]
  3. ALTEPLASE [Concomitant]
     Active Substance: ALTEPLASE
  4. b complete [Concomitant]
  5. CALCIUM CARBONATE [Concomitant]
     Active Substance: CALCIUM CARBONATE
  6. TUKYSA [Concomitant]
     Active Substance: TUCATINIB
  7. DEXAMETHASONE [Concomitant]
     Active Substance: DEXAMETHASONE
  8. EXCEDRIN [Concomitant]
     Active Substance: ACETAMINOPHEN\ASPIRIN\CAFFEINE
  9. FAMOTIDINE [Concomitant]
     Active Substance: FAMOTIDINE
  10. GRANISETRON [Concomitant]
     Active Substance: GRANISETRON
  11. HAIR-SKIN-NAILS [Concomitant]
  12. KAJINTI [Concomitant]
  13. KLOR-CON [Concomitant]
     Active Substance: POTASSIUM CHLORIDE
  14. CLARITIN [Concomitant]
     Active Substance: LORATADINE
  15. LOVENOX [Concomitant]
     Active Substance: ENOXAPARIN SODIUM
  16. LORAZEPAM [Concomitant]
     Active Substance: LORAZEPAM
  17. MECLIZINE [Concomitant]
     Active Substance: MECLIZINE HYDROCHLORIDE
  18. METHOCARBAMOL [Concomitant]
     Active Substance: METHOCARBAMOL
  19. MEDROL [Concomitant]
     Active Substance: METHYLPREDNISOLONE
  20. METOPROLOL [Concomitant]
     Active Substance: METOPROLOL
  21. MORPHINE [Concomitant]
     Active Substance: MORPHINE
  22. VITAMINS [Concomitant]
     Active Substance: VITAMINS

REACTIONS (5)
  - Pulmonary thrombosis [None]
  - Thrombosis [None]
  - Tumour excision [None]
  - Craniotomy [None]
  - Procedural complication [None]
